FAERS Safety Report 6406433-6 (Version None)
Quarter: 2009Q4

REPORT INFORMATION
  Report Type: 
  Country: None (occurrence: None)
  Receive Date: 20091014
  Receipt Date: 20091007
  Transmission Date: 20100525
  Serious: Yes (Hospitalization)
  Sender: FDA-Public Use
  Company Number: SPV1-2009-01982

PATIENT
  Age: 86 Year
  Sex: Male
  Weight: 81.6 kg

DRUGS (2)
  1. FOSRENOL [Suspect]
     Indication: HYPERPHOSPHATAEMIA
     Dosage: 1500 MG, (1.5 TABLETS) WITH MEALS, ORAL
     Route: 048
     Dates: end: 20091004
  2. UNSPECIFIED BLOOD PRESSURE MEDICATIONS [Concomitant]

REACTIONS (1)
  - PANCREATITIS [None]
